FAERS Safety Report 23861388 (Version 1)
Quarter: 2024Q2

REPORT INFORMATION
  Report Type: Other
  Country: JP (occurrence: JP)
  Receive Date: 20240516
  Receipt Date: 20240516
  Transmission Date: 20240715
  Serious: Yes (Death)
  Sender: FDA-Public Use
  Company Number: JP-CHUGAI-2024009883

PATIENT
  Age: 71 Year
  Sex: Male

DRUGS (1)
  1. ACTEMRA [Suspect]
     Active Substance: TOCILIZUMAB
     Indication: Rheumatoid meningitis
     Dosage: UNK
     Route: 065

REACTIONS (2)
  - White matter lesion [Fatal]
  - Off label use [Unknown]

NARRATIVE: CASE EVENT DATE: 20230101
